FAERS Safety Report 17611951 (Version 1)
Quarter: 2020Q2

REPORT INFORMATION
  Report Type: Spontaneous
  Country: FR (occurrence: FR)
  Receive Date: 20200401
  Receipt Date: 20200401
  Transmission Date: 20200713
  Serious: Yes (Other)
  Sender: FDA-Public Use
  Company Number: FR-009507513-2003FRA010494

PATIENT
  Age: 66 Year
  Sex: Male
  Weight: 52 kg

DRUGS (11)
  1. ALIMTA [Suspect]
     Active Substance: PEMETREXED DISODIUM
     Indication: LUNG NEOPLASM MALIGNANT
     Dosage: 890 MILLIGRAM; FORMULATION: POWDER FOR SOLUTION TO DILUTE FOR INFUSION; STRENGTH: 500MG
     Route: 042
     Dates: start: 20200129, end: 20200129
  2. ZAMUDOL [Concomitant]
     Active Substance: TRAMADOL HYDROCHLORIDE
     Dosage: UNK; FORMULATION: EXTENDED RELEASE CAPSULE; STRENGTH: 100MG
  3. SPASFON [PHLOROGLUCINOL;TRIMETHYLPHLOROGLUCINOL] [Concomitant]
     Active Substance: PHLOROGLUCINOL\1,3,5-TRIMETHOXYBENZENE
     Dosage: UNK
  4. OROZAMUDOL [Concomitant]
     Active Substance: TRAMADOL
     Dosage: UNK
  5. PRIMPERAN [Concomitant]
     Active Substance: METOCLOPRAMIDE HYDROCHLORIDE
     Dosage: UNK
  6. ACETAMINOPHEN. [Concomitant]
     Active Substance: ACETAMINOPHEN
     Dosage: UNK
  7. KEYTRUDA [Suspect]
     Active Substance: PEMBROLIZUMAB
     Indication: LUNG NEOPLASM MALIGNANT
     Dosage: 200 MILLIGRAM; FORMULATION: POWDER FOR SOLUTION TO DILUTE FOR INFUSION; STRENGTH: 50 MG
     Route: 042
     Dates: start: 20200129, end: 20200129
  8. CARBOPLATIN ACCORD [Suspect]
     Active Substance: CARBOPLATIN
     Indication: LUNG NEOPLASM MALIGNANT
     Dosage: 544.19 MILLIGRAM
     Route: 042
     Dates: start: 20200129, end: 20200129
  9. PANTOPRAZOLE [Concomitant]
     Active Substance: PANTOPRAZOLE
     Dosage: UNK
  10. IMOVANE [Concomitant]
     Active Substance: ZOPICLONE
     Dosage: UNK
  11. NICOPATCH [Concomitant]
     Active Substance: NICOTINE
     Dosage: UNK

REACTIONS (5)
  - Neutropenia [Recovering/Resolving]
  - Thrombocytopenia [Recovering/Resolving]
  - General physical health deterioration [Recovering/Resolving]
  - Erythropenia [Recovering/Resolving]
  - Anaemia [Recovering/Resolving]

NARRATIVE: CASE EVENT DATE: 202002
